FAERS Safety Report 12808505 (Version 1)
Quarter: 2016Q4

REPORT INFORMATION
  Report Type: Spontaneous
  Country: US (occurrence: US)
  Receive Date: 20161004
  Receipt Date: 20161004
  Transmission Date: 20170207
  Serious: No
  Sender: FDA-Public Use
  Company Number: US-MYLANLABS-2016M1003202

PATIENT
  Sex: Female

DRUGS (3)
  1. LEUCOVORIN                         /00566701/ [Concomitant]
     Active Substance: LEUCOVORIN
     Indication: COLON CANCER METASTATIC
     Dosage: 760 MG, UNK
     Dates: start: 20151208
  2. OXALIPLATIN INJECTION, USP [Suspect]
     Active Substance: OXALIPLATIN
     Dosage: 160 MG, EVERY OTHER WEEK
     Route: 042
     Dates: start: 20151208, end: 20160118
  3. FLUOROURACIL 5 FU [Concomitant]
     Active Substance: FLUOROURACIL
     Indication: COLON CANCER METASTATIC
     Dosage: 760 MG, BOLUSM 4580 MG CONTINUOUS INFUSION
     Dates: start: 20151208

REACTIONS (4)
  - Liver function test increased [Recovered/Resolved]
  - Pain in extremity [Not Recovered/Not Resolved]
  - Vision blurred [Not Recovered/Not Resolved]
  - Neuropathy peripheral [Not Recovered/Not Resolved]

NARRATIVE: CASE EVENT DATE: 20160104
